FAERS Safety Report 11866989 (Version 1)
Quarter: 2015Q4

REPORT INFORMATION
  Report Type: Spontaneous
  Country: US (occurrence: None)
  Receive Date: 20151223
  Receipt Date: 20151223
  Transmission Date: 20160305
  Serious: Yes (Hospitalization)
  Sender: FDA-Public Use
  Company Number: None

PATIENT
  Age: 63 Year
  Sex: Male
  Weight: 90.7 kg

DRUGS (1)
  1. CISPLATIN. [Suspect]
     Active Substance: CISPLATIN
     Dosage: RADIATION TREATMENT WAS COMPLETED EARLY MORNING OF 12/7/15 BUT CISPLATIN (WEEK 5) WAS HELD ON 12/7/15 AFTER THROMBOEMBOLIC EVENT FOUND. RADIATION TREATMENT WAS HELD ON 12/8/15 AND RESUMED 12/9/15.
     Dates: end: 20151130

REACTIONS (5)
  - Deep vein thrombosis [None]
  - Pancytopenia [None]
  - Blood count abnormal [None]
  - Gait disturbance [None]
  - Pain in extremity [None]

NARRATIVE: CASE EVENT DATE: 20151207
